FAERS Safety Report 9116061 (Version 4)
Quarter: 2013Q2

REPORT INFORMATION
  Report Type: Spontaneous
  Country: US (occurrence: US)
  Receive Date: 20130225
  Receipt Date: 20130508
  Transmission Date: 20140414
  Serious: Yes (Death, Other)
  Sender: FDA-Public Use
  Company Number: US-PFIZER INC-2013068179

PATIENT
  Age: 56 Year
  Sex: Male
  Weight: 56 kg

DRUGS (8)
  1. ALDACTONE [Suspect]
     Dosage: 50 MG, 1X/DAY
     Route: 048
  2. PROTONIX [Suspect]
     Dosage: 40 MG, 1X/DAY
     Route: 048
  3. FOLIC ACID [Concomitant]
     Dosage: UNK
  4. FUROSEMIDE [Concomitant]
     Dosage: UNK
  5. LACTULOSE [Concomitant]
     Dosage: UNK
  6. PROPRANOLOL [Concomitant]
     Dosage: UNK
  7. VITAMIN B1 [Concomitant]
     Dosage: 100 MG, UNK
  8. OXYCODONE [Concomitant]
     Dosage: UNK

REACTIONS (4)
  - Death [Fatal]
  - Colon cancer [Unknown]
  - Infection [Unknown]
  - Infection parasitic [Unknown]
